FAERS Safety Report 5342688-7 (Version None)
Quarter: 2007Q2

REPORT INFORMATION
  Report Type: 
  Country: None (occurrence: None)
  Receive Date: 20070601
  Receipt Date: 20061115
  Transmission Date: 20071010
  Serious: Yes (Hospitalization)
  Sender: FDA-Public Use
  Company Number: A0627694A

PATIENT
  Age: 59 Year
  Sex: Female

DRUGS (6)
  1. AMOXICILLIN AND CLAVULANATE POTASSIUM [Suspect]
     Dosage: 875MG TWICE PER DAY
     Route: 048
  2. NASONEX [Concomitant]
  3. ZOLOFT [Concomitant]
  4. ULTRAM [Concomitant]
  5. FLEXERIL [Concomitant]
  6. ALBUTEROL [Concomitant]

REACTIONS (2)
  - DRUG INEFFECTIVE [None]
  - DRUG RESISTANCE [None]
